FAERS Safety Report 5106743-9 (Version None)
Quarter: 2006Q3

REPORT INFORMATION
  Report Type: 
  Country: None (occurrence: None)
  Receive Date: 20060731
  Receipt Date: 20060127
  Transmission Date: 20061208
  Serious: Yes (Other)
  Sender: FDA-Public Use
  Company Number: US-JNJFOC-20050801305

PATIENT
  Age: 64 Year
  Sex: Female
  Weight: 58.9676 kg

DRUGS (6)
  1. RISPERDAL [Suspect]
     Indication: BIPOLAR DISORDER
     Dosage: SEE IMAGE
     Route: 048
     Dates: start: 20000101
  2. FOSAMAX (ALENDRONATE SODIUM) CAPSULES [Concomitant]
  3. SYNTHROID (LEVOTHYROXINE SODIUM) TABLETS [Concomitant]
  4. ARIMIDEX (ANASTROZOLE) TABLETS [Concomitant]
  5. PAXIL [Concomitant]
  6. TEMAZEPAM [Concomitant]

REACTIONS (2)
  - PLATELET COUNT DECREASED [None]
  - WHITE BLOOD CELL COUNT DECREASED [None]
